FAERS Safety Report 20843761 (Version 1)
Quarter: 2022Q2

REPORT INFORMATION
  Report Type: Spontaneous
  Country: US (occurrence: US)
  Receive Date: 20220518
  Receipt Date: 20220518
  Transmission Date: 20220721
  Serious: Yes (Death, Other)
  Sender: FDA-Public Use
  Company Number: US-PFIZER INC-202200397333

PATIENT
  Age: 69 Year
  Sex: Male

DRUGS (1)
  1. INLYTA [Suspect]
     Active Substance: AXITINIB
     Indication: Metastases to liver
     Dosage: 5 MG
     Dates: start: 20220331

REACTIONS (2)
  - Death [Fatal]
  - Off label use [Unknown]
